FAERS Safety Report 14504159 (Version 1)
Quarter: 2018Q1

REPORT INFORMATION
  Report Type: Spontaneous
  Country: US (occurrence: US)
  Receive Date: 20180208
  Receipt Date: 20180208
  Transmission Date: 20180509
  Serious: No
  Sender: FDA-Public Use
  Company Number: US-JNJFOC-20171225426

PATIENT
  Age: 8 Decade
  Sex: Female

DRUGS (2)
  1. MENS ROGAINE [Suspect]
     Active Substance: MINOXIDIL
     Indication: ALOPECIA
     Route: 061
  2. MENS ROGAINE [Suspect]
     Active Substance: MINOXIDIL
     Route: 061

REACTIONS (5)
  - Malaise [Recovered/Resolved]
  - Skin disorder [Recovered/Resolved]
  - Intentional product misuse [Unknown]
  - Erythema [Recovered/Resolved]
  - Product use issue [Unknown]
